FAERS Safety Report 12759084 (Version 1)
Quarter: 2016Q3

REPORT INFORMATION
  Report Type: Spontaneous
  Country: GB (occurrence: GB)
  Receive Date: 20160919
  Receipt Date: 20160919
  Transmission Date: 20161109
  Serious: Yes (Disabling)
  Sender: FDA-Public Use
  Company Number: GB-PFIZER INC-2016429019

PATIENT
  Age: 72 Year
  Sex: Female
  Weight: 57 kg

DRUGS (13)
  1. IVABRADINE [Concomitant]
     Active Substance: IVABRADINE
     Dosage: HALF DOSAGE FORM, TWICE A DAY
     Dates: start: 20160607
  2. SALBUTAMOL [Concomitant]
     Active Substance: ALBUTEROL
     Dosage: 2 DOSAGE FORMS, UNSPECIFIED FREQUENCY
     Dates: start: 20160524
  3. GLICLAZIDE [Concomitant]
     Active Substance: GLICLAZIDE
     Dosage: 2 DOSAGE FORMS, ONCE A DAY (IN THE MORNING)
     Dates: start: 20160524
  4. CAPOTEN [Concomitant]
     Active Substance: CAPTOPRIL
     Dosage: 2 DOSAGE FORMS, TWICE A DAY
     Dates: start: 20160524
  5. CARVEDILOL. [Concomitant]
     Active Substance: CARVEDILOL
     Dosage: 1 DOSAGE FORM, ONCE A DAY
     Dates: start: 20160524, end: 20160613
  6. FLUCONAZOLE. [Concomitant]
     Active Substance: FLUCONAZOLE
     Dosage: 1 DOSAGE FORM, ONCE A DAY
     Dates: start: 20160711, end: 20160718
  7. SPIRONOLACTONE. [Suspect]
     Active Substance: SPIRONOLACTONE
     Dosage: UNKNOWN DOSE AND FREQUENCY
     Dates: start: 20160901
  8. DAKTACORT [Concomitant]
     Active Substance: HYDROCORTISONE\MICONAZOLE NITRATE
     Dosage: 1 DOSAGE FORM, TWICE A DAY
     Dates: start: 20160809, end: 20160823
  9. BUMETANIDE. [Concomitant]
     Active Substance: BUMETANIDE
     Dosage: 5 DOSAGE FORMS, DAILY (3 IN MORNING AND 2 AT MIDDAY)
     Dates: start: 20160711
  10. HUMULIN M3 [Concomitant]
     Active Substance: INSULIN HUMAN
     Dosage: USED AS DIRECTED
     Dates: start: 20160524
  11. NIQUITIN /01033301/ [Concomitant]
     Dosage: 1 DOSAGE FORM, ONCE A DAY
     Dates: start: 20160823
  12. AMOXICILLIN. [Concomitant]
     Active Substance: AMOXICILLIN
     Dosage: 1 DOSAGE FORM, THREE TIMES A DAY
     Dates: start: 20160620, end: 20160627
  13. FUROSEMIDE. [Concomitant]
     Active Substance: FUROSEMIDE
     Dosage: 1 DOSAGE FORM, ONCE A DAY
     Dates: start: 20160524, end: 20160613

REACTIONS (2)
  - Mouth ulceration [Recovering/Resolving]
  - Candida infection [Unknown]

NARRATIVE: CASE EVENT DATE: 20160901
